FAERS Safety Report 8004451-8 (Version None)
Quarter: 2011Q4

REPORT INFORMATION
  Report Type: 
  Country: None (occurrence: None)
  Receive Date: 20111221
  Receipt Date: 20111221
  Transmission Date: 20120403
  Serious: Yes (Other)
  Sender: FDA-Public Use
  Company Number: None

PATIENT
  Age: 46 Year
  Sex: Female
  Weight: 88.4514 kg

DRUGS (1)
  1. ETODOLAC [Suspect]
     Indication: TOOTHACHE
     Dosage: 1 PO Q8H ORAL
     Route: 048
     Dates: start: 20111111, end: 20111112

REACTIONS (2)
  - TOOTHACHE [None]
  - WITHDRAWAL SYNDROME [None]
